FAERS Safety Report 5982629-2 (Version None)
Quarter: 2008Q4

REPORT INFORMATION
  Report Type: 
  Country: None (occurrence: None)
  Receive Date: 20081208
  Receipt Date: 20081203
  Transmission Date: 20090506
  Serious: Yes (Death, Hospitalization, Other)
  Sender: FDA-Public Use
  Company Number: PHHY2008MX30583

PATIENT
  Age: 81 Year
  Sex: Female

DRUGS (1)
  1. STALEVO 100 [Suspect]
     Indication: PARKINSON'S DISEASE
     Dosage: 2 TABLETS (150/37.5/200 MG) PER DAY
     Route: 048
     Dates: start: 20060201

REACTIONS (3)
  - FALL [None]
  - RESPIRATORY FAILURE [None]
  - SURGERY [None]
